FAERS Safety Report 18276514 (Version 1)
Quarter: 2020Q3

REPORT INFORMATION
  Report Type: Spontaneous
  Country: DE (occurrence: DE)
  Receive Date: 20200917
  Receipt Date: 20200917
  Transmission Date: 20201103
  Serious: Yes (Other)
  Sender: FDA-Public Use
  Company Number: DE-TEVA-2020-DE-1826860

PATIENT
  Age: 38 Year
  Sex: Male
  Weight: 65 kg

DRUGS (1)
  1. DOXYCYCLIN [Suspect]
     Active Substance: DOXYCYCLINE
     Indication: LYME DISEASE
     Dosage: 200MG
     Route: 048
     Dates: start: 20200517, end: 20200531

REACTIONS (1)
  - Erectile dysfunction [Recovered/Resolved]
